FAERS Safety Report 5767290-4 (Version None)
Quarter: 2008Q2

REPORT INFORMATION
  Report Type: 
  Country: None (occurrence: None)
  Receive Date: 20080612
  Receipt Date: 20080602
  Transmission Date: 20081010
  Serious: Yes (Death, Hospitalization, Other)
  Sender: FDA-Public Use
  Company Number: US-ELI_LILLY_AND_COMPANY-US200805002191

PATIENT
  Age: 60 Year
  Sex: Female

DRUGS (3)
  1. XIGRIS [Suspect]
     Indication: SEPSIS
     Dosage: UNK, UNK
     Route: 042
     Dates: start: 20080501, end: 20080501
  2. ROCEPHIN [Concomitant]
     Indication: PNEUMONIA
     Dosage: 1 G, UNK
     Dates: start: 20080501
  3. LEVAQUIN [Concomitant]
     Indication: PNEUMONIA
     Dosage: 500 MG, UNK
     Dates: start: 20080501

REACTIONS (3)
  - MALIGNANT NEOPLASM PROGRESSION [None]
  - MULTI-ORGAN FAILURE [None]
  - SEPSIS [None]
